FAERS Safety Report 19110040 (Version 2)
Quarter: 2022Q2

REPORT INFORMATION
  Report Type: Spontaneous
  Country: US (occurrence: US)
  Receive Date: 20210409
  Receipt Date: 20220616
  Transmission Date: 20220720
  Serious: No
  Sender: FDA-Public Use
  Company Number: US-GE HEALTHCARE LIFE SCIENCES-2021CSU000393

PATIENT
  Age: 59 Year
  Sex: Male

DRUGS (5)
  1. GADOLINIUM [Suspect]
     Active Substance: GADOLINIUM
     Indication: Magnetic resonance imaging
     Dosage: UNK, SINGLE
     Route: 065
  2. GADOLINIUM [Suspect]
     Active Substance: GADOLINIUM
     Indication: Product used for unknown indication
  3. CA DTPA [Concomitant]
     Indication: Chelation therapy
     Dosage: 2.5 ML
  4. CA DTPA [Concomitant]
     Dosage: 2.5 UNK
  5. SODIUM CHLORIDE [Concomitant]
     Active Substance: SODIUM CHLORIDE
     Indication: Chelation therapy
     Dosage: 50 ML

REACTIONS (1)
  - Urine analysis abnormal [Unknown]
